FAERS Safety Report 26121551 (Version 1)
Quarter: 2025Q4

REPORT INFORMATION
  Report Type: Spontaneous
  Country: US (occurrence: US)
  Receive Date: 20251204
  Receipt Date: 20251204
  Transmission Date: 20260117
  Serious: Yes (Other)
  Sender: DR REDDYS
  Company Number: US-DRL-USA-USA/2025/11/018322

PATIENT
  Age: 54 Year
  Sex: Female

DRUGS (1)
  1. MELPHALAN [Suspect]
     Active Substance: MELPHALAN
     Indication: Histiocytosis
     Route: 013

REACTIONS (3)
  - Middle cerebral artery stroke [Unknown]
  - Ophthalmoplegia [Unknown]
  - Product use in unapproved indication [Unknown]
